FAERS Safety Report 18360308 (Version 1)
Quarter: 2020Q4

REPORT INFORMATION
  Report Type: Spontaneous
  Country: US (occurrence: US)
  Receive Date: 20201008
  Receipt Date: 20201008
  Transmission Date: 20210114
  Serious: No
  Sender: FDA-Public Use
  Company Number: US-INDIVIOR US-INDV-122791-2019

PATIENT
  Sex: Female

DRUGS (9)
  1. SUBOXONE [Suspect]
     Active Substance: BUPRENORPHINE HYDROCHLORIDE\NALOXONE HYDROCHLORIDE
     Dosage: 8 MILLIGRAM, TID (8 MG EVERY MORNING, HALF OF 8 MG FILM EVERY AFTERNOON, 8 MG FILM AT BED TIME)
     Route: 002
  2. SUBOXONE [Suspect]
     Active Substance: BUPRENORPHINE HYDROCHLORIDE\NALOXONE HYDROCHLORIDE
     Dosage: 8 MILLIGRAM, TID (8 MG EVERY MORNING, HALF OF 8 MG FILM EVERY AFTERNOON, 8 MG FILM AT BED TIME)
     Route: 002
     Dates: start: 201911, end: 201911
  3. UNSPECIFIED GENERIC BUPRENORPHINE/NALOXONE  FILM [Suspect]
     Active Substance: BUPRENORPHINE HYDROCHLORIDE\NALOXONE HYDROCHLORIDE
     Dosage: UNK
     Route: 060
     Dates: start: 201911, end: 201911
  4. SUBOXONE [Suspect]
     Active Substance: BUPRENORPHINE HYDROCHLORIDE\NALOXONE HYDROCHLORIDE
     Indication: DRUG DEPENDENCE
     Dosage: 8 MILLIGRAM, TID (8 MG EVERY MORNING, HALF OF 8 MG FILM EVERY AFTERNOON, 8 MG FILM AT BED TIME)
     Route: 060
  5. UNSPECIFIED GENERIC BUPRENORPHINE/NALOXONE  FILM [Suspect]
     Active Substance: BUPRENORPHINE HYDROCHLORIDE\NALOXONE HYDROCHLORIDE
     Dosage: UNK
     Route: 002
     Dates: start: 201911, end: 201911
  6. QUETIAPINE. [Concomitant]
     Active Substance: QUETIAPINE
     Indication: DEPRESSION
     Dosage: UNK
     Route: 065
  7. UNSPECIFIED GENERIC BUPRENORPHINE/NALOXONE  FILM [Suspect]
     Active Substance: BUPRENORPHINE HYDROCHLORIDE\NALOXONE HYDROCHLORIDE
     Indication: DRUG DEPENDENCE
     Dosage: UNK
     Route: 060
  8. SUBOXONE [Suspect]
     Active Substance: BUPRENORPHINE HYDROCHLORIDE\NALOXONE HYDROCHLORIDE
     Dosage: 8 MILLIGRAM, TID (8 MG EVERY MORNING, HALF OF 8 MG FILM EVERY AFTERNOON, 8 MG FILM AT BED TIME)
     Route: 060
     Dates: start: 201911, end: 201911
  9. UNSPECIFIED GENERIC BUPRENORPHINE/NALOXONE  FILM [Suspect]
     Active Substance: BUPRENORPHINE HYDROCHLORIDE\NALOXONE HYDROCHLORIDE
     Dosage: UNK
     Route: 002

REACTIONS (5)
  - Oral mucosal exfoliation [Not Recovered/Not Resolved]
  - Stomatitis [Not Recovered/Not Resolved]
  - Inappropriate schedule of product administration [Recovered/Resolved]
  - Wrong technique in product usage process [Recovered/Resolved]
  - Mouth haemorrhage [Not Recovered/Not Resolved]
